FAERS Safety Report 12525170 (Version 2)
Quarter: 2016Q3

REPORT INFORMATION
  Report Type: Spontaneous
  Country: JP (occurrence: JP)
  Receive Date: 20160704
  Receipt Date: 20160805
  Transmission Date: 20161109
  Serious: Yes (Other)
  Sender: FDA-Public Use
  Company Number: JP-AMGEN-JPNSP2016085322

PATIENT
  Age: 62 Year
  Sex: Female

DRUGS (1)
  1. RANMARK [Suspect]
     Active Substance: DENOSUMAB
     Indication: GASTRIC CANCER
     Dosage: UNK
     Route: 065
     Dates: start: 20150806, end: 20160121

REACTIONS (1)
  - Osteonecrosis of jaw [Not Recovered/Not Resolved]
